FAERS Safety Report 8610699-1 (Version None)
Quarter: 2012Q3

REPORT INFORMATION
  Report Type: 
  Country: None (occurrence: None)
  Receive Date: 20120822
  Receipt Date: 20120817
  Transmission Date: 20120928
  Serious: Yes (Life-Threatening, Hospitalization, Other)
  Sender: FDA-Public Use
  Company Number: DE-NOVOPROD-354060

PATIENT
  Age: 10 Year
  Sex: Male
  Weight: 48.9 kg

DRUGS (2)
  1. INSULIN DETEMIR PENFILL [Suspect]
     Indication: TYPE 1 DIABETES MELLITUS
     Dosage: 18 U, QD
     Dates: start: 20120612
  2. NOVORAPID PENFILL 3.0 ML [Suspect]
     Indication: TYPE 1 DIABETES MELLITUS
     Dosage: 22 U, QD
     Dates: start: 20120612

REACTIONS (1)
  - HYPOGLYCAEMIC SEIZURE [None]
